FAERS Safety Report 18318359 (Version 1)
Quarter: 2020Q3

REPORT INFORMATION
  Report Type: Spontaneous
  Country: GB (occurrence: GB)
  Receive Date: 20200928
  Receipt Date: 20200928
  Transmission Date: 20201103
  Serious: Yes (Hospitalization)
  Sender: FDA-Public Use
  Company Number: GB-BAUSCH-BL-2020-026801

PATIENT
  Age: 3 Decade
  Sex: Male

DRUGS (5)
  1. METFORMIN [Suspect]
     Active Substance: METFORMIN HYDROCHLORIDE
     Dosage: OVERDOSE AT 50 TO 60 G
     Route: 065
  2. METFORMIN [Suspect]
     Active Substance: METFORMIN HYDROCHLORIDE
     Indication: TYPE 2 DIABETES MELLITUS
     Route: 065
  3. LEVOTHYROXINE. [Suspect]
     Active Substance: LEVOTHYROXINE
     Indication: HYPOTHYROIDISM
     Route: 065
  4. LEVOTHYROXINE. [Suspect]
     Active Substance: LEVOTHYROXINE
     Dosage: OVERDOSE AT AN UNCLEAR AMOUNT
     Route: 065
  5. AMLODIPINE;HYDROCHLOROTHIAZIDE;TELMISARTAN [Concomitant]
     Indication: PRODUCT USED FOR UNKNOWN INDICATION
     Dosage: COMBINED PILL: AMLODIPINE (2.5 MG), TELMISARTAN (20 MG) AND HYDROCHLOROTHIAZIDE (6.25 MG) DAILY
     Route: 065

REACTIONS (3)
  - Lactic acidosis [Recovered/Resolved]
  - Overdose [Recovering/Resolving]
  - Acute kidney injury [Recovering/Resolving]
